FAERS Safety Report 8846618 (Version 1)
Quarter: 2012Q4

REPORT INFORMATION
  Report Type: 
  Country: PH (occurrence: PH)
  Receive Date: 20121017
  Receipt Date: 20121017
  Transmission Date: 20130627
  Serious: Yes (Death, Other)
  Sender: FDA-Public Use
  Company Number: PH-BAXTER-2012BAX019796

PATIENT
  Age: 74 Year
  Sex: Male

DRUGS (1)
  1. DIANEAL PD4 WITH 1.5% DEXTROSE [Suspect]
     Indication: CAPD
     Route: 033
     Dates: start: 20120213, end: 20120930

REACTIONS (4)
  - Cardiovascular disorder [Fatal]
  - Cardiac arrest [Fatal]
  - Renal failure chronic [Fatal]
  - Hypertension [Unknown]
